FAERS Safety Report 5193932-0 (Version None)
Quarter: 2006Q4

REPORT INFORMATION
  Report Type: 
  Country: None (occurrence: None)
  Receive Date: 20061228
  Receipt Date: 20061219
  Transmission Date: 20070319
  Serious: Yes (Hospitalization)
  Sender: FDA-Public Use
  Company Number: 2006AP06137

PATIENT
  Age: 14611 Day
  Sex: Male
  Weight: 68 kg

DRUGS (7)
  1. OMEPRAL [Suspect]
     Indication: GASTRIC ULCER
     Route: 048
     Dates: start: 20061113, end: 20061123
  2. ASPIRIN [Suspect]
     Indication: ANGINA PECTORIS
     Route: 048
     Dates: start: 20061113, end: 20061123
  3. PANALDINE [Suspect]
     Indication: ANGINA PECTORIS
     Route: 048
     Dates: start: 20061113, end: 20061123
  4. THYRADIN [Concomitant]
     Indication: HYPOTHYROIDISM
     Route: 048
     Dates: start: 19880420
  5. CORTRIL [Concomitant]
     Indication: ADRENAL CORTICAL INSUFFICIENCY
     Route: 048
     Dates: start: 19880420
  6. DESMOPRESSIN [Concomitant]
     Indication: DIABETES INSIPIDUS
     Dates: start: 19880420
  7. LIPITOR [Concomitant]
     Indication: HYPERLIPIDAEMIA
     Route: 048
     Dates: start: 20020909

REACTIONS (1)
  - OCULOMUCOCUTANEOUS SYNDROME [None]
